FAERS Safety Report 5885389-9 (Version None)
Quarter: 2008Q3

REPORT INFORMATION
  Report Type: 
  Country: None (occurrence: None)
  Receive Date: 20080916
  Receipt Date: 20080904
  Transmission Date: 20090109
  Serious: Yes (Other)
  Sender: FDA-Public Use
  Company Number: US-PFIZER INC-2008075097

PATIENT
  Sex: Female

DRUGS (2)
  1. DILANTIN [Suspect]
  2. DILANTIN [Suspect]
     Route: 048

REACTIONS (3)
  - ACTIVITIES OF DAILY LIVING IMPAIRED [None]
  - DYSPHAGIA [None]
  - SEDATION [None]
